FAERS Safety Report 9057620 (Version 1)
Quarter: 2013Q1

REPORT INFORMATION
  Report Type: Spontaneous
  Country: US (occurrence: None)
  Receive Date: 20130204
  Receipt Date: 20130204
  Transmission Date: 20140127
  Serious: Yes (Hospitalization)
  Sender: FDA-Public Use
  Company Number: None

PATIENT
  Age: 82 Year
  Sex: Female
  Weight: 42.4 kg

DRUGS (12)
  1. DILANTIN [Suspect]
     Dosage: 100 MG QAM PO
  2. TYLENOL PM [Suspect]
  3. PRAVACHOL [Concomitant]
  4. PLAVIX [Concomitant]
  5. ASA [Concomitant]
  6. NORVASC [Concomitant]
  7. TYLENOL [Concomitant]
  8. MVI [Concomitant]
  9. COREG [Concomitant]
  10. LUMIGAN [Concomitant]
  11. DORZOLAMIDE [Concomitant]
  12. OCULAR LUBRICANT [Concomitant]

REACTIONS (6)
  - Asthenia [None]
  - Fall [None]
  - Dysarthria [None]
  - Hyponatraemia [None]
  - Anticonvulsant drug level above therapeutic [None]
  - Cognitive disorder [None]
